FAERS Safety Report 8935962 (Version 1)
Quarter: 2012Q4

REPORT INFORMATION
  Report Type: 
  Country: US (occurrence: US)
  Receive Date: 20121130
  Receipt Date: 20121130
  Transmission Date: 20130627
  Serious: Yes (Other)
  Sender: FDA-Public Use
  Company Number: US-PFIZER INC-2012297689

PATIENT
  Age: 58 Year
  Sex: Male
  Weight: 86.17 kg

DRUGS (5)
  1. REVATIO [Suspect]
     Indication: PULMONARY HYPERTENSION
     Dosage: 20 mg, 3x/day
     Dates: end: 20121122
  2. AMBIEN [Concomitant]
     Indication: SLEEP PROBLEM
     Dosage: 10 mg, daily
  3. ALTACE [Concomitant]
     Indication: CARDIOVASCULAR EVENT PROPHYLAXIS
     Dosage: 2.5 mg, daily
  4. LASIX [Concomitant]
     Dosage: 25 mg, as needed
  5. POTASSIUM [Concomitant]
     Dosage: UNK, as needed

REACTIONS (1)
  - Dyspnoea [Not Recovered/Not Resolved]
